FAERS Safety Report 20720965 (Version 2)
Quarter: 2022Q2

REPORT INFORMATION
  Report Type: Spontaneous
  Country: US (occurrence: US)
  Receive Date: 20220418
  Receipt Date: 20220419
  Transmission Date: 20220721
  Serious: Yes (Other)
  Sender: FDA-Public Use
  Company Number: US-PFIZER INC-202200543173

PATIENT
  Age: 13 Year
  Sex: Male

DRUGS (6)
  1. VINCRISTINE SULFATE [Suspect]
     Active Substance: VINCRISTINE SULFATE
     Indication: Retinoblastoma
     Dosage: 1.5 MG/M2, DAY 0
     Route: 042
  2. VINCRISTINE SULFATE [Suspect]
     Active Substance: VINCRISTINE SULFATE
     Dosage: 2 MG/M2, DAY 0
     Route: 042
  3. CISPLATIN [Suspect]
     Active Substance: CISPLATIN
     Indication: Retinoblastoma
     Dosage: 105 MG/M2, 6 H ON DAY 0
     Route: 042
  4. CYCLOPHOSPHAMIDE [Suspect]
     Active Substance: CYCLOPHOSPHAMIDE
     Indication: Retinoblastoma
     Dosage: 1950 MG/M2, 1 H ON DAYS 1 AND 2
     Route: 042
  5. ETOPOSIDE [Suspect]
     Active Substance: ETOPOSIDE
     Indication: Retinoblastoma
     Dosage: 120 MG/M2, ON DAYS 1 AND 2
     Route: 042
  6. MESNA [Suspect]
     Active Substance: MESNA
     Indication: Retinoblastoma
     Dosage: UNK

REACTIONS (4)
  - Neutropenia [Recovered/Resolved]
  - Vomiting [Unknown]
  - Nausea [Unknown]
  - Off label use [Unknown]
